FAERS Safety Report 20390612 (Version 1)
Quarter: 2022Q1

REPORT INFORMATION
  Report Type: Report from Study
  Country: FR (occurrence: FR)
  Receive Date: 20220128
  Receipt Date: 20220128
  Transmission Date: 20220423
  Serious: Yes (Hospitalization, Other)
  Sender: FDA-Public Use
  Company Number: FR-BION-010271

PATIENT
  Age: 20 Year
  Sex: Male
  Weight: 85 kg

DRUGS (4)
  1. APIXABAN [Interacting]
     Active Substance: APIXABAN
     Dosage: PRESUMED INGESTED DOSE: (300 MG)?30 X (5 MG X 2)
     Route: 048
  2. ACETAMINOPHEN [Interacting]
     Active Substance: ACETAMINOPHEN
     Indication: Product used for unknown indication
  3. ZOPICLONE [Interacting]
     Active Substance: ZOPICLONE
     Indication: Product used for unknown indication
  4. BISOPROLOL [Interacting]
     Active Substance: BISOPROLOL
     Indication: Product used for unknown indication

REACTIONS (5)
  - Somnolence [Unknown]
  - Suicide attempt [Unknown]
  - Overdose [Unknown]
  - Toxicity to various agents [Unknown]
  - Drug interaction [Unknown]
